FAERS Safety Report 20053478 (Version 1)
Quarter: 2021Q4

REPORT INFORMATION
  Report Type: Spontaneous
  Country: CN (occurrence: CN)
  Receive Date: 20211110
  Receipt Date: 20211110
  Transmission Date: 20220303
  Serious: Yes (Other)
  Sender: FDA-Public Use
  Company Number: CN-PFIZER INC-202101472022

PATIENT
  Age: 51 Year
  Sex: Female
  Weight: 58 kg

DRUGS (2)
  1. PACLITAXEL [Suspect]
     Active Substance: PACLITAXEL
     Indication: Ovarian cancer
     Dosage: 210 MG, 1X/DAY
     Route: 041
     Dates: start: 20211007, end: 20211007
  2. CARBOPLATIN [Suspect]
     Active Substance: CARBOPLATIN
     Indication: Ovarian cancer
     Dosage: 500 MG, 1X/DAY
     Route: 041
     Dates: start: 20211007, end: 20211007

REACTIONS (3)
  - Abdominal discomfort [Recovering/Resolving]
  - Rash [Recovering/Resolving]
  - Pruritus [Recovering/Resolving]

NARRATIVE: CASE EVENT DATE: 20211007
